FAERS Safety Report 24314547 (Version 1)
Quarter: 2024Q3

REPORT INFORMATION
  Report Type: Report from Study
  Country: CL (occurrence: CL)
  Receive Date: 20240913
  Receipt Date: 20240913
  Transmission Date: 20241017
  Serious: Yes (Other)
  Sender: JOHNSON AND JOHNSON
  Company Number: CL-JNJFOC-20240912518

PATIENT
  Age: 6 Decade
  Sex: Female

DRUGS (1)
  1. SIMPONI [Suspect]
     Active Substance: GOLIMUMAB
     Indication: Colitis ulcerative
     Dosage: THERAPY START DATE ALSO REPORTED AS FROM 2 OR 3 YEARS AGO
     Route: 058

REACTIONS (5)
  - Intestinal haemorrhage [Unknown]
  - Weight increased [Unknown]
  - Adverse event [Unknown]
  - Abdominal pain [Unknown]
  - Off label use [Unknown]
